FAERS Safety Report 10154580 (Version 1)
Quarter: 2014Q2

REPORT INFORMATION
  Report Type: Spontaneous
  Country: US (occurrence: None)
  Receive Date: 20140505
  Receipt Date: 20140505
  Transmission Date: 20141212
  Serious: Yes (Life-Threatening)
  Sender: FDA-Public Use
  Company Number: None

PATIENT
  Age: 65 Year
  Sex: Male
  Weight: 106.6 kg

DRUGS (1)
  1. MUCINEX [Suspect]
     Indication: SINUS DISORDER

REACTIONS (2)
  - Heart rate irregular [None]
  - Heart rate increased [None]
